FAERS Safety Report 5069077-7 (Version None)
Quarter: 2006Q3

REPORT INFORMATION
  Report Type: 
  Country: None (occurrence: None)
  Receive Date: 20060731
  Receipt Date: 20060720
  Transmission Date: 20061208
  Serious: Yes (Hospitalization)
  Sender: FDA-Public Use
  Company Number: 2006089603

PATIENT
  Age: 64 Year
  Sex: Male

DRUGS (3)
  1. METHYLPREDNISOLONE SODIUM SUCCINATE [Suspect]
     Indication: ASTHMA
  2. ALBUTEROL [Suspect]
     Indication: ASTHMA
  3. IPRATROPIUM BROMIDE [Suspect]
     Indication: ASTHMA

REACTIONS (6)
  - ASTHMA [None]
  - CONDITION AGGRAVATED [None]
  - HYPERHIDROSIS [None]
  - SINUS POLYP [None]
  - SINUS TACHYCARDIA [None]
  - SINUSITIS [None]
